FAERS Safety Report 5624882-0 (Version None)
Quarter: 2008Q1

REPORT INFORMATION
  Report Type: 
  Country: None (occurrence: None)
  Receive Date: 20080213
  Receipt Date: 20070410
  Transmission Date: 20080703
  Serious: Yes (Hospitalization)
  Sender: FDA-Public Use
  Company Number: US-ASTRAZENECA-2007UW02124

PATIENT
  Age: 599 Month
  Sex: Female
  Weight: 102.3 kg

DRUGS (6)
  1. SEROQUEL [Suspect]
     Indication: BIPOLAR DISORDER
     Route: 048
     Dates: start: 19981101, end: 19990501
  2. ABILIFY [Concomitant]
     Dosage: 10 TO 30 MG
     Dates: start: 20050601
  3. GEODON [Concomitant]
     Dates: start: 20031001, end: 20050501
  4. RISPERDAL [Concomitant]
     Dosage: 1 MG EVERY MORNING AND 2 MG EVERY NIGHT
     Dates: start: 20010401, end: 20020801
  5. TRILAFON/TRIAVIL [Concomitant]
     Dates: start: 19980101
  6. DEPAKOTE [Concomitant]
     Dosage: 500 TO 1000 MG
     Dates: start: 20040601, end: 20041201

REACTIONS (11)
  - FORAMINOTOMY [None]
  - GASTROOESOPHAGEAL REFLUX DISEASE [None]
  - INCONTINENCE [None]
  - OSTEOPENIA [None]
  - PANIC ATTACK [None]
  - PARAESTHESIA [None]
  - ROTATOR CUFF REPAIR [None]
  - SLEEP APNOEA SYNDROME [None]
  - SLEEP DISORDER [None]
  - SPINAL LAMINECTOMY [None]
  - TYPE 2 DIABETES MELLITUS [None]
